FAERS Safety Report 6370496-7 (Version None)
Quarter: 2009Q3

REPORT INFORMATION
  Report Type: 
  Country: None (occurrence: None)
  Receive Date: 20090923
  Receipt Date: 20090914
  Transmission Date: 20100115
  Serious: Yes (Other)
  Sender: FDA-Public Use
  Company Number: TW-KINGPHARMUSA00001-K200901151

PATIENT
  Age: 39 Year
  Sex: Female
  Weight: 52 kg

DRUGS (2)
  1. LEVOXYL [Suspect]
     Indication: THYROID NEOPLASM
     Dosage: 100 MCG, QD
     Dates: start: 20070401, end: 20070101
  2. IODINE [Suspect]
     Indication: RADIOACTIVE IODINE THERAPY
     Dosage: 63.59 MCG, SINGLE
     Dates: start: 20070101, end: 20070101

REACTIONS (3)
  - BASEDOW'S DISEASE [None]
  - HYPERTHYROIDISM [None]
  - PALPITATIONS [None]
